FAERS Safety Report 10697899 (Version 1)
Quarter: 2014Q4

REPORT INFORMATION
  Report Type: Spontaneous
  Country: US (occurrence: None)
  Receive Date: 20141223
  Receipt Date: 20141223
  Transmission Date: 20150529
  Serious: No
  Sender: FDA-Public Use
  Company Number: 1000071568

PATIENT
  Age: 82 Year
  Sex: Female

DRUGS (1)
  1. LINZESS [Suspect]
     Active Substance: LINACLOTIDE
     Indication: CONSTIPATION
     Dosage: 145MCG AS NEEDED (AS NEEDED), ORAL
     Route: 048
     Dates: start: 201407, end: 20141010

REACTIONS (5)
  - Off label use [None]
  - Fatigue [None]
  - Asthenia [None]
  - Decreased appetite [None]
  - Blood chloride decreased [None]

NARRATIVE: CASE EVENT DATE: 201407
